FAERS Safety Report 20371377 (Version 1)
Quarter: 2022Q1

REPORT INFORMATION
  Report Type: Spontaneous
  Country: US (occurrence: US)
  Receive Date: 20220124
  Receipt Date: 20220124
  Transmission Date: 20220423
  Serious: Yes (Hospitalization)
  Sender: FDA-Public Use
  Company Number: US-PFIZER INC-202101638153

PATIENT
  Age: 43 Year
  Sex: Male
  Weight: 87.982 kg

DRUGS (4)
  1. LYRICA CR [Suspect]
     Active Substance: PREGABALIN
     Dosage: 330 MG, 1X/DAY
     Dates: start: 2013
  2. LYRICA CR [Suspect]
     Active Substance: PREGABALIN
     Dosage: 330 MG, 1X/DAY
     Dates: start: 2013
  3. LIDOCAINE [Concomitant]
     Active Substance: LIDOCAINE
     Dosage: UNK, 2X/DAY (EVERY 12 HOURS 3 PATCHES A DAY)
     Dates: start: 20131130
  4. CELECOXIB [Concomitant]
     Active Substance: CELECOXIB
     Dosage: 200 MG, 1X/DAY
     Dates: start: 20131130

REACTIONS (8)
  - Cerebrovascular accident [Unknown]
  - Blindness [Unknown]
  - Blood pressure increased [Unknown]
  - Pain [Unknown]
  - Stress [Unknown]
  - Back injury [Unknown]
  - Insomnia [Unknown]
  - Recalled product administered [Unknown]
